FAERS Safety Report 25390175 (Version 7)
Quarter: 2025Q3

REPORT INFORMATION
  Report Type: Spontaneous
  Country: US (occurrence: US)
  Receive Date: 20250603
  Receipt Date: 20250731
  Transmission Date: 20251021
  Serious: No
  Sender: PFIZER
  Company Number: US-PFIZER INC-202500109604

PATIENT
  Age: 6 Year
  Sex: Male

DRUGS (1)
  1. GENOTROPIN [Suspect]
     Active Substance: SOMATROPIN
     Indication: Short stature
     Dosage: 0.6 MG, 1X/DAY INJECTION
     Dates: start: 20250315

REACTIONS (3)
  - Drug dose omission by device [Unknown]
  - Liquid product physical issue [Unknown]
  - Device defective [Unknown]

NARRATIVE: CASE EVENT DATE: 20250101
